FAERS Safety Report 19439286 (Version 2)
Quarter: 2024Q3

REPORT INFORMATION
  Report Type: Spontaneous
  Country: IT (occurrence: IT)
  Receive Date: 20210619
  Receipt Date: 20240820
  Transmission Date: 20241016
  Serious: Yes (Life-Threatening, Hospitalization, Other)
  Sender: ACCORD
  Company Number: IT-MLMSERVICE-20210601-2918404-1

PATIENT
  Age: 55 Year
  Sex: Female

DRUGS (7)
  1. TRAZODONE HYDROCHLORIDE [Suspect]
     Active Substance: TRAZODONE HYDROCHLORIDE
     Indication: Pain
  2. BROMAZEPAM [Interacting]
     Active Substance: BROMAZEPAM
     Indication: Pain
  3. ACETAMINOPHEN [Interacting]
     Active Substance: ACETAMINOPHEN
     Indication: Pain
  4. NALOXONE HYDROCHLORIDE\OXYCODONE HYDROCHLORIDE [Interacting]
     Active Substance: NALOXONE HYDROCHLORIDE\OXYCODONE HYDROCHLORIDE
     Indication: Pain
  5. ACETAMINOPHEN\CODEINE PHOSPHATE [Interacting]
     Active Substance: ACETAMINOPHEN\CODEINE PHOSPHATE
     Indication: Pain
  6. TRAMADOL [Interacting]
     Active Substance: TRAMADOL\TRAMADOL HYDROCHLORIDE
     Indication: Pain
  7. CARBAMAZEPINE [Suspect]
     Active Substance: CARBAMAZEPINE
     Indication: Pain

REACTIONS (13)
  - Lactic acidosis [Unknown]
  - Hepatitis acute [Recovered/Resolved]
  - Mydriasis [Unknown]
  - Hypokalaemia [Unknown]
  - Atrial fibrillation [Recovered/Resolved]
  - Drug interaction [Unknown]
  - Hypothermia [Recovered/Resolved]
  - Coma [Recovered/Resolved]
  - Bradycardia [Recovered/Resolved]
  - Hypotension [Recovered/Resolved]
  - Overdose [Unknown]
  - Drug level increased [Recovered/Resolved]
  - Off label use [Unknown]
